FAERS Safety Report 21543007 (Version 1)
Quarter: 2022Q4

REPORT INFORMATION
  Report Type: Report from Study
  Country: US (occurrence: US)
  Receive Date: 20221102
  Receipt Date: 20221102
  Transmission Date: 20230113
  Serious: Yes (Hospitalization)
  Sender: FDA-Public Use
  Company Number: US-ABBVIE-22K-163-4388085-00

PATIENT
  Age: 77 Year
  Sex: Female

DRUGS (2)
  1. IMBRUVICA [Suspect]
     Active Substance: IBRUTINIB
     Indication: Chronic lymphocytic leukaemia
     Route: 048
     Dates: start: 20191217
  2. IMBRUVICA [Suspect]
     Active Substance: IBRUTINIB
     Indication: Chronic lymphocytic leukaemia
     Route: 048
     Dates: start: 20220708

REACTIONS (8)
  - COVID-19 [Unknown]
  - Full blood count abnormal [Unknown]
  - Fungal foot infection [Unknown]
  - Ulcer [Unknown]
  - Impaired healing [Unknown]
  - Herpes zoster [Not Recovered/Not Resolved]
  - Nail infection [Unknown]
  - Contusion [Unknown]

NARRATIVE: CASE EVENT DATE: 20211101
